FAERS Safety Report 7693340-4 (Version None)
Quarter: 2011Q3

REPORT INFORMATION
  Report Type: 
  Country: None (occurrence: None)
  Receive Date: 20110819
  Receipt Date: 20110804
  Transmission Date: 20111222
  Serious: Yes (Other)
  Sender: FDA-Public Use
  Company Number: CH-CELGENEUS-151-50794-11080684

PATIENT
  Sex: Female

DRUGS (2)
  1. TRANSFUSION [Concomitant]
     Route: 041
  2. VIDAZA [Suspect]
     Route: 065

REACTIONS (3)
  - PANCYTOPENIA [None]
  - AGRANULOCYTOSIS [None]
  - ACUTE FEBRILE NEUTROPHILIC DERMATOSIS [None]
